FAERS Safety Report 13904691 (Version 1)
Quarter: 2017Q3

REPORT INFORMATION
  Report Type: Spontaneous
  Country: US (occurrence: US)
  Receive Date: 20170824
  Receipt Date: 20170824
  Transmission Date: 20171127
  Serious: Yes (Other)
  Sender: FDA-Public Use
  Company Number: None

PATIENT
  Age: 86 Year
  Sex: Male
  Weight: 69.75 kg

DRUGS (12)
  1. LIPITOR [Concomitant]
     Active Substance: ATORVASTATIN CALCIUM
  2. VOTRIENT [Suspect]
     Active Substance: PAZOPANIB HYDROCHLORIDE
     Indication: RENAL CELL CARCINOMA
     Route: 048
     Dates: start: 20170627
  3. PROSCAR [Concomitant]
     Active Substance: FINASTERIDE
  4. TAMSULOSIN [Concomitant]
     Active Substance: TAMSULOSIN
  5. RANITIDINE. [Concomitant]
     Active Substance: RANITIDINE
  6. ASPIRIN. [Concomitant]
     Active Substance: ASPIRIN
  7. MEDICAL MARIJUANA [Concomitant]
     Active Substance: CANNABIS SATIVA SUBSP. INDICA TOP
  8. MYRBETRIQ [Concomitant]
     Active Substance: MIRABEGRON
  9. NORVASC [Concomitant]
     Active Substance: AMLODIPINE BESYLATE
  10. LACTULOSE. [Concomitant]
     Active Substance: LACTULOSE
  11. MIRALAX [Concomitant]
     Active Substance: POLYETHYLENE GLYCOL 3350
  12. PANTOPRAZOLE [Concomitant]
     Active Substance: PANTOPRAZOLE

REACTIONS (4)
  - Peripheral swelling [None]
  - Rash [None]
  - Contusion [None]
  - Chest pain [None]
